FAERS Safety Report 6880991-X (Version None)
Quarter: 2010Q2

REPORT INFORMATION
  Report Type: 
  Country: None (occurrence: None)
  Receive Date: 20100630
  Receipt Date: 20100305
  Transmission Date: 20101027
  Serious: No
  Sender: FDA-Public Use
  Company Number: 2010IP000019

PATIENT
  Sex: Female

DRUGS (1)
  1. BEPREVE [Suspect]

REACTIONS (1)
  - SKIN REACTION [None]
